FAERS Safety Report 5225238-5 (Version None)
Quarter: 2007Q1

REPORT INFORMATION
  Report Type: 
  Country: None (occurrence: None)
  Receive Date: 20070131
  Receipt Date: 20070123
  Transmission Date: 20070707
  Serious: Yes (Other)
  Sender: FDA-Public Use
  Company Number: BR-ROCHE-476326

PATIENT
  Age: 23 Year
  Sex: Female

DRUGS (4)
  1. ROACUTAN [Suspect]
     Indication: ACNE
     Dosage: START DATE REPORTED AS '1998 OR 1999'
     Route: 048
     Dates: start: 19980615
  2. ROACUTAN [Suspect]
     Dosage: STRENGTH AND FORMULATION FOR THIS THERAPY: 20 MG CAPSULE.
     Route: 048
     Dates: start: 20060915
  3. ROACUTAN [Suspect]
     Dosage: STRENGTH AND FORMULATION FOR THIS THERAPY: 20 MG CAPSULES.
     Route: 048
  4. UNSPECIFIED MEDICATION [Concomitant]
     Indication: CONTRACEPTION
     Route: 048

REACTIONS (3)
  - DEAFNESS [None]
  - INFLUENZA [None]
  - OTOSCLEROSIS [None]
